FAERS Safety Report 8486221-X (Version None)
Quarter: 2012Q3

REPORT INFORMATION
  Report Type: 
  Country: None (occurrence: None)
  Receive Date: 20120703
  Receipt Date: 20120621
  Transmission Date: 20120928
  Serious: Yes (Other)
  Sender: FDA-Public Use
  Company Number: FR-ELI_LILLY_AND_COMPANY-FR201206007711

PATIENT
  Age: 57 Year
  Sex: Male

DRUGS (2)
  1. GEMZAR [Suspect]
  2. GEMZAR [Suspect]
     Indication: ADENOCARCINOMA PANCREAS
     Route: 042

REACTIONS (5)
  - SKIN NECROSIS [None]
  - SKIN EXFOLIATION [None]
  - PRURITUS [None]
  - RASH PAPULAR [None]
  - ERYTHEMA [None]
